FAERS Safety Report 4820233-X (Version None)
Quarter: 2005Q4

REPORT INFORMATION
  Report Type: 
  Country: None (occurrence: None)
  Receive Date: 20051102
  Receipt Date: 20051102
  Transmission Date: 20060501
  Serious: Yes (Other)
  Sender: FDA-Public Use
  Company Number: None

PATIENT
  Age: 59 Year
  Sex: Male
  Weight: 70.3 kg

DRUGS (1)
  1. INSULIN BEEF/PORK [Suspect]

REACTIONS (4)
  - EYE PRURITUS [None]
  - HYPOTENSION [None]
  - LACRIMATION INCREASED [None]
  - URTICARIA [None]
